FAERS Safety Report 15074498 (Version 1)
Quarter: 2018Q2

REPORT INFORMATION
  Report Type: Spontaneous
  Country: US (occurrence: US)
  Receive Date: 20180627
  Receipt Date: 20180627
  Transmission Date: 20180711
  Serious: Yes (Hospitalization, Other)
  Sender: FDA-Public Use
  Company Number: US-SAOL THERAPEUTICS-2018SAO00452

PATIENT
  Age: 63 Year
  Sex: Female
  Weight: 56.69 kg

DRUGS (18)
  1. DILAUDID [Suspect]
     Active Substance: HYDROMORPHONE HYDROCHLORIDE
     Dosage: 2.248 MG, \DAY
     Route: 037
     Dates: end: 20180326
  2. GABAPENTIN. [Concomitant]
     Active Substance: GABAPENTIN
     Dosage: 100 MG, 3X/DAY
  3. KLOR-CON [Concomitant]
     Active Substance: POTASSIUM CHLORIDE
  4. VIMPAT [Concomitant]
     Active Substance: LACOSAMIDE
  5. BUPIVACAINE. [Suspect]
     Active Substance: BUPIVACAINE
     Dosage: 5.903 MG, \DAY
     Route: 037
     Dates: start: 20180326, end: 20180328
  6. BACLOFEN. [Concomitant]
     Active Substance: BACLOFEN
     Dosage: 20 MG, 2X/DAY
  7. SYNTHROID [Concomitant]
     Active Substance: LEVOTHYROXINE SODIUM
  8. BUPIVACAINE. [Suspect]
     Active Substance: BUPIVACAINE
     Dosage: 4.497 MG, \DAY
     Route: 037
     Dates: end: 20180326
  9. MIRTAZAPINE. [Concomitant]
     Active Substance: MIRTAZAPINE
     Dosage: 15 UNK, UNK
  10. DILAUDID [Suspect]
     Active Substance: HYDROMORPHONE HYDROCHLORIDE
     Dosage: UNK
     Route: 037
     Dates: start: 20180328
  11. COMPOUNDED BACLOFEN [Suspect]
     Active Substance: BACLOFEN
     Indication: PAIN
     Dosage: 17.988 ?G, \DAY
     Route: 037
     Dates: start: 20171219, end: 20180326
  12. COMPOUNDED BACLOFEN [Suspect]
     Active Substance: BACLOFEN
     Indication: PAIN
     Dosage: 23.613 ?G, \DAY
     Route: 037
     Dates: start: 20180326, end: 20180328
  13. COMPOUNDED BACLOFEN [Suspect]
     Active Substance: BACLOFEN
     Dosage: UNK
     Route: 037
     Dates: start: 20180328
  14. UNSPECIFIED INTRATHECAL MEDICATION [Suspect]
     Active Substance: UNSPECIFIED INGREDIENT
     Route: 037
  15. UNSPECIFIED INTRATHECAL MEDICATION [Suspect]
     Active Substance: UNSPECIFIED INGREDIENT
     Dosage: UNK
  16. DILAUDID [Suspect]
     Active Substance: HYDROMORPHONE HYDROCHLORIDE
     Dosage: 2.951 MG, \DAY
     Route: 037
     Dates: start: 20180326, end: 20180328
  17. BUPIVACAINE. [Suspect]
     Active Substance: BUPIVACAINE
     Dosage: UNK
     Route: 037
     Dates: start: 20180328
  18. LASIX [Concomitant]
     Active Substance: FUROSEMIDE

REACTIONS (5)
  - Off label use [Unknown]
  - Dysphagia [Unknown]
  - Respiratory depression [Not Recovered/Not Resolved]
  - Seizure [Unknown]
  - Tremor [Not Recovered/Not Resolved]

NARRATIVE: CASE EVENT DATE: 20180327
